FAERS Safety Report 21346220 (Version 6)
Quarter: 2023Q2

REPORT INFORMATION
  Report Type: Report from Study
  Country: US (occurrence: US)
  Receive Date: 20220917
  Receipt Date: 20230607
  Transmission Date: 20230721
  Serious: No
  Sender: FDA-Public Use
  Company Number: US-NOVARTISTESTPH-NVSC2022US209735

PATIENT
  Age: 53 Year
  Sex: Female

DRUGS (1)
  1. KESIMPTA [Suspect]
     Active Substance: OFATUMUMAB
     Indication: Multiple sclerosis
     Dosage: 20 MG, QMO
     Route: 058
     Dates: start: 20220525

REACTIONS (6)
  - Neck pain [Recovered/Resolved]
  - Tremor [Unknown]
  - Fatigue [Unknown]
  - Pain in extremity [Unknown]
  - Back pain [Unknown]
  - Influenza [Unknown]

NARRATIVE: CASE EVENT DATE: 20220914
